FAERS Safety Report 6941441-8 (Version None)
Quarter: 2010Q3

REPORT INFORMATION
  Report Type: 
  Country: None (occurrence: None)
  Receive Date: 20100825
  Receipt Date: 20100823
  Transmission Date: 20110219
  Serious: Yes (Hospitalization)
  Sender: FDA-Public Use
  Company Number: TR-ROXANE LABORATORIES, INC.-2010-RO-01124RO

PATIENT
  Age: 20 Year
  Sex: Female

DRUGS (3)
  1. LEVETIRACETAM [Suspect]
     Indication: GRAND MAL CONVULSION
     Dosage: 1000 MG
  2. LEVETIRACETAM [Suspect]
     Dosage: 1500 MG
  3. LEVETIRACETAM [Suspect]
     Dosage: 2000 MG

REACTIONS (1)
  - CONDITION AGGRAVATED [None]
